FAERS Safety Report 14821190 (Version 1)
Quarter: 2018Q2

REPORT INFORMATION
  Report Type: Spontaneous
  Country: US (occurrence: US)
  Receive Date: 20180427
  Receipt Date: 20180427
  Transmission Date: 20180711
  Serious: No
  Sender: FDA-Public Use
  Company Number: US-009507513-1804USA009048

PATIENT
  Sex: Female

DRUGS (1)
  1. CLARINEX [Suspect]
     Active Substance: DESLORATADINE
     Dosage: 1 DF, QD
     Route: 048

REACTIONS (3)
  - Product availability issue [Unknown]
  - Drug dose omission [Unknown]
  - No adverse event [Unknown]
